FAERS Safety Report 9289986 (Version 2)
Quarter: 2013Q3

REPORT INFORMATION
  Report Type: Report from Study
  Country: JP (occurrence: JP)
  Receive Date: 20130515
  Receipt Date: 20130710
  Transmission Date: 20140515
  Serious: Yes (Other)
  Sender: FDA-Public Use
  Company Number: JP-JNJFOC-20130303782

PATIENT
  Age: 68 Year
  Sex: Female
  Weight: 42 kg

DRUGS (18)
  1. SIMPONI [Suspect]
     Indication: RHEUMATOID ARTHRITIS
     Route: 058
     Dates: start: 20120612
  2. SIMPONI [Suspect]
     Indication: RHEUMATOID ARTHRITIS
     Route: 058
     Dates: start: 20120710
  3. METHOTREXATE [Suspect]
     Indication: RHEUMATOID ARTHRITIS
     Route: 065
     Dates: start: 20120918
  4. METHOTREXATE [Suspect]
     Indication: RHEUMATOID ARTHRITIS
     Route: 065
     Dates: start: 20120326, end: 20120424
  5. METHOTREXATE [Suspect]
     Indication: RHEUMATOID ARTHRITIS
     Route: 065
     Dates: start: 20110829, end: 20120320
  6. METHOTREXATE [Suspect]
     Indication: RHEUMATOID ARTHRITIS
     Route: 065
     Dates: start: 20120430, end: 20120710
  7. METHOTREXATE [Suspect]
     Indication: RHEUMATOID ARTHRITIS
     Route: 065
     Dates: start: 20120813, end: 20120827
  8. METHOTREXATE [Suspect]
     Indication: RHEUMATOID ARTHRITIS
     Route: 065
     Dates: start: 20120714, end: 20120807
  9. FOLIAMIN [Concomitant]
     Indication: PROPHYLAXIS
     Route: 048
  10. TAKEPRON [Concomitant]
     Indication: GASTRITIS
     Route: 048
  11. ISCOTIN [Concomitant]
     Indication: PROPHYLAXIS
     Route: 048
  12. URSO [Concomitant]
     Indication: PROPHYLAXIS
     Route: 048
  13. PREDNISOLONE [Concomitant]
     Indication: RHEUMATOID ARTHRITIS
     Route: 048
     Dates: start: 20120113
  14. LOXOPROFEN [Concomitant]
     Indication: RHEUMATOID ARTHRITIS
     Route: 048
     Dates: start: 20121005
  15. ALOSENN [Concomitant]
     Indication: CONSTIPATION
     Route: 048
  16. MAGLAX [Concomitant]
     Indication: CONSTIPATION
     Route: 048
  17. BIODIASTASE-NATURAL AGENTS COMBINED DRUG [Concomitant]
     Route: 048
  18. BIOFERMIN R [Concomitant]
     Indication: PROPHYLAXIS
     Route: 048

REACTIONS (2)
  - Respiratory tract infection [Recovering/Resolving]
  - Bronchitis [Recovering/Resolving]
